FAERS Safety Report 25690491 (Version 1)
Quarter: 2025Q3

REPORT INFORMATION
  Report Type: Spontaneous
  Country: UA (occurrence: UA)
  Receive Date: 20250818
  Receipt Date: 20250818
  Transmission Date: 20251021
  Serious: Yes (Hospitalization)
  Sender: TEVA
  Company Number: UA-TEVA-VS-3363362

PATIENT
  Age: 48 Year
  Sex: Female

DRUGS (3)
  1. METHOTREXATE [Suspect]
     Active Substance: METHOTREXATE
     Indication: Systemic scleroderma
     Route: 048
  2. Indapamide Perindopril Arginine [Concomitant]
     Indication: Hypertension
     Route: 065
  3. Indapamide Perindopril Arginine [Concomitant]
     Indication: Hypertension
     Route: 065

REACTIONS (2)
  - Ischaemic cerebral infarction [Recovered/Resolved]
  - Hyperhomocysteinaemia [Recovered/Resolved]

NARRATIVE: CASE EVENT DATE: 20241201
